FAERS Safety Report 5022699-1 (Version None)
Quarter: 2006Q2

REPORT INFORMATION
  Report Type: 
  Country: None (occurrence: None)
  Receive Date: 20060501
  Receipt Date: 20060125
  Transmission Date: 20061013
  Serious: Yes (Other)
  Sender: FDA-Public Use
  Company Number: 200610414BWH

PATIENT
  Age: 81 Year
  Sex: Male
  Weight: 97.5234 kg

DRUGS (15)
  1. NEXAVAR [Suspect]
     Indication: RENAL CANCER METASTATIC
     Dosage: 400 MG, BID, ORAL
     Route: 048
     Dates: start: 20060117, end: 20060205
  2. NEXAVAR [Suspect]
     Indication: RENAL CANCER METASTATIC
     Dosage: 400 MG, BID, ORAL
     Route: 048
     Dates: start: 20060225
  3. GENERIC NORVASC [Concomitant]
  4. IRON SUPPLEMENT [Concomitant]
  5. STOOL SOFTENER [Concomitant]
  6. DETROL [Concomitant]
  7. GENERIC ADVAIR [Concomitant]
  8. FLUNISOLIDE [Concomitant]
  9. FORMOTEROL [Concomitant]
  10. BUDESONIDE [Concomitant]
  11. PLENDIL [Concomitant]
  12. DOCUSATE SODIUM [Concomitant]
  13. FE SO4 [Concomitant]
  14. KLOR-CON [Concomitant]
  15. FLAGYL [Concomitant]

REACTIONS (5)
  - ALOPECIA [None]
  - ANOREXIA [None]
  - DIARRHOEA [None]
  - HYPERTENSION [None]
  - WEIGHT DECREASED [None]
